FAERS Safety Report 4771348-6 (Version None)
Quarter: 2005Q3

REPORT INFORMATION
  Report Type: 
  Country: None (occurrence: None)
  Receive Date: 20050914
  Receipt Date: 20050831
  Transmission Date: 20060218
  Serious: Yes (Other)
  Sender: FDA-Public Use
  Company Number: USA0508106740

PATIENT
  Age: 15 Year
  Sex: Female

DRUGS (1)
  1. CYMBALTA [Suspect]
     Indication: DEPRESSION
     Dosage: 30 MG/AS NEEDED
     Dates: start: 20050601, end: 20050817

REACTIONS (4)
  - BLOOD PRESSURE INCREASED [None]
  - LOSS OF CONSCIOUSNESS [None]
  - TREATMENT NONCOMPLIANCE [None]
  - URINARY INCONTINENCE [None]
